FAERS Safety Report 20053216 (Version 1)
Quarter: 2021Q4

REPORT INFORMATION
  Report Type: Spontaneous
  Country: US (occurrence: US)
  Receive Date: 20211110
  Receipt Date: 20211110
  Transmission Date: 20220304
  Serious: No
  Sender: FDA-Public Use
  Company Number: US-NOVARTISTESTPH-NVSC2021US257130

PATIENT
  Sex: Male
  Weight: 70.295 kg

DRUGS (1)
  1. XIIDRA [Suspect]
     Active Substance: LIFITEGRAST
     Indication: Dry eye
     Dosage: 1 DRP, BID
     Route: 047
     Dates: start: 20211108

REACTIONS (2)
  - Eye irritation [Unknown]
  - Vision blurred [Unknown]
